FAERS Safety Report 10332559 (Version 2)
Quarter: 2014Q3

REPORT INFORMATION
  Report Type: Spontaneous
  Country: US (occurrence: US)
  Receive Date: 20140722
  Receipt Date: 20140722
  Transmission Date: 20150326
  Serious: No
  Sender: FDA-Public Use
  Company Number: US-UNITED THERAPEUTICS-UTC-041455

PATIENT
  Age: 60 Year
  Sex: Female
  Weight: 61.4 kg

DRUGS (4)
  1. SILDENAFIL [Concomitant]
     Active Substance: SILDENAFIL
  2. REMODULIN [Suspect]
     Active Substance: TREPROSTINIL
     Route: 058
     Dates: start: 20130322
  3. LETAIRIS [Suspect]
     Active Substance: AMBRISENTAN
  4. LETAIRIS [Suspect]
     Active Substance: AMBRISENTAN
     Dates: start: 20071204

REACTIONS (12)
  - Malaise [Unknown]
  - Headache [Unknown]
  - Infusion site pain [Unknown]
  - Syncope [Unknown]
  - Vomiting [Unknown]
  - Nausea [Unknown]
  - Accidental overdose [Unknown]
  - Fatigue [Unknown]
  - Feeling abnormal [Unknown]
  - Diarrhoea [Unknown]
  - Drug dose omission [Unknown]
  - Asthenia [Unknown]

NARRATIVE: CASE EVENT DATE: 20131127
